FAERS Safety Report 5332710-6 (Version None)
Quarter: 2007Q2

REPORT INFORMATION
  Report Type: 
  Country: None (occurrence: None)
  Receive Date: 20070523
  Receipt Date: 20070511
  Transmission Date: 20071010
  Serious: Yes (Hospitalization)
  Sender: FDA-Public Use
  Company Number: SE-PFIZER INC-2007038727

PATIENT
  Sex: Male

DRUGS (6)
  1. LYRICA [Suspect]
     Indication: ANXIETY
     Route: 048
     Dates: start: 20070123, end: 20070222
  2. ZOLPIDEM TARTRATE [Concomitant]
  3. CIPRALEX [Concomitant]
     Route: 048
  4. SOBRIL [Concomitant]
     Route: 048
  5. EMCONCOR [Concomitant]
     Route: 048
  6. DEXOFEN ^ASTRA^ [Concomitant]
     Route: 048

REACTIONS (1)
  - ELECTROCARDIOGRAM QT PROLONGED [None]
